FAERS Safety Report 17076449 (Version 6)
Quarter: 2023Q2

REPORT INFORMATION
  Report Type: Spontaneous
  Country: US (occurrence: US)
  Receive Date: 20191126
  Receipt Date: 20230628
  Transmission Date: 20230722
  Serious: Yes (Other)
  Sender: FDA-Public Use
  Company Number: US-PFIZER INC-2019212585

PATIENT
  Age: 64 Year
  Sex: Female
  Weight: 68 kg

DRUGS (18)
  1. XELJANZ [Suspect]
     Active Substance: TOFACITINIB CITRATE
     Indication: Colitis ulcerative
     Dosage: 10 MG, 2X/DAY
     Route: 048
     Dates: start: 20190322
  2. XELJANZ [Suspect]
     Active Substance: TOFACITINIB CITRATE
     Dosage: 5MG 3 TABLETS DAILY
  3. AMLODIPINE [Concomitant]
     Active Substance: AMLODIPINE BESYLATE
     Dosage: 10 MG, 1X/DAY
     Route: 048
  4. CANASA [Concomitant]
     Active Substance: MESALAMINE
     Dosage: 1000 MG, 1X/DAY (1 SUPPOSITORY INTO RECTUM AT BEDTIME AS DIRECTED)
     Route: 054
  5. CLOBETASOL [Concomitant]
     Active Substance: CLOBETASOL
     Dosage: UNK UNK, 2X/DAY (APPLY 1 SMALL DOSE TWICE A DAY)
  6. CRANBERRY [Concomitant]
     Active Substance: CRANBERRY
     Dosage: 475 MG, 1X/DAY
     Route: 048
  7. FISH OIL [Concomitant]
     Active Substance: FISH OIL
     Dosage: 1000 MG, 1X/DAY
     Route: 048
  8. FLUTICASONE [Concomitant]
     Active Substance: FLUTICASONE
     Dosage: UNK UG, 1X/DAY (50 MCG/ACTUATION 1 INTO BOTH NOSTRILS ONCE A DAY)
     Route: 045
  9. LEVOTHYROXINE [Concomitant]
     Active Substance: LEVOTHYROXINE
     Dosage: 75 UG, 1X/DAY
     Route: 048
  10. LORATADINE [Concomitant]
     Active Substance: LORATADINE
     Dosage: 10 MG, 1X/DAY
     Route: 048
  11. LORAZEPAM [Concomitant]
     Active Substance: LORAZEPAM
     Dosage: UNK UNK, AS NEEDED (TAKE 1/2 TO 1 TABLET BY MOUTH ONCE A DAY)
     Route: 048
  12. PENTASA [Concomitant]
     Active Substance: MESALAMINE
     Dosage: 1000 MG, 4X/DAY (TAKE TWO CAPSULES BY MOUTH 4 TIMES DAILY)
     Route: 048
  13. PROAIR HFA [Concomitant]
     Active Substance: ALBUTEROL SULFATE
     Dosage: UNK UNK, AS NEEDED (90 MCG/ACTUATION 1 AS NEEDED)
  14. DIETARY SUPPLEMENT\PROBIOTICS [Concomitant]
     Active Substance: DIETARY SUPPLEMENT\PROBIOTICS NOS
     Dosage: 1 DF, 1X/DAY (TAKE 1 CAPSULE BY MOUTH ONCE A DAY AS DIRECTED)
     Route: 048
  15. SYMBICORT [Concomitant]
     Active Substance: BUDESONIDE\FORMOTEROL FUMARATE DIHYDRATE
     Dosage: 2 DF, 2X/DAY
     Route: 055
  16. VITAMIN C [Concomitant]
     Active Substance: ASCORBIC ACID
     Dosage: 500 MG, 1X/DAY
     Route: 048
  17. VITAMIN D3 [Concomitant]
     Active Substance: CHOLECALCIFEROL
     Dosage: 1000 IU, 1X/DAY
     Route: 048
  18. ONDANSETRON HYDROCHLORIDE [Concomitant]
     Active Substance: ONDANSETRON HYDROCHLORIDE
     Dosage: 4 MG, AS NEEDED(TAKE 1 TABLET BY MOUTH THREE TIMES A DAY AS NEEDED)

REACTIONS (7)
  - Fall [Unknown]
  - Wound [Unknown]
  - Skin laceration [Unknown]
  - Accidental overdose [Unknown]
  - Movement disorder [Unknown]
  - Fatigue [Unknown]
  - Off label use [Unknown]

NARRATIVE: CASE EVENT DATE: 20190510
